FAERS Safety Report 6839927-X (Version None)
Quarter: 2010Q2

REPORT INFORMATION
  Report Type: 
  Country: None (occurrence: None)
  Receive Date: 20100629
  Receipt Date: 20100310
  Transmission Date: 20101027
  Serious: Yes (Other)
  Sender: FDA-Public Use
  Company Number: US-WYE-H14055110

PATIENT
  Sex: Female

DRUGS (2)
  1. PRISTIQ [Suspect]
     Indication: MAJOR DEPRESSION
     Dosage: 50 MG 1X PER 1 DAY
     Dates: start: 20080804, end: 20080926
  2. WELLBUTRIN [Concomitant]

REACTIONS (2)
  - ACCOMMODATION DISORDER [None]
  - VISION BLURRED [None]
